FAERS Safety Report 4697649-8 (Version None)
Quarter: 2005Q2

REPORT INFORMATION
  Report Type: 
  Country: None (occurrence: None)
  Receive Date: 20050620
  Receipt Date: 20040804
  Transmission Date: 20051028
  Serious: Yes (Hospitalization)
  Sender: FDA-Public Use
  Company Number: 200415905US

PATIENT
  Age: 68 Year
  Sex: Female

DRUGS (16)
  1. LANTUS [Suspect]
     Indication: DIABETES MELLITUS INSULIN-DEPENDENT
     Dosage: 15 U HS
     Dates: start: 20040730
  2. LANTUS [Suspect]
     Indication: DIABETES MELLITUS INSULIN-DEPENDENT
     Dosage: 10 U HS
     Dates: end: 20040801
  3. DILTIAZEM [Concomitant]
  4. TRICOR [Concomitant]
  5. FOSAMAX [Concomitant]
  6. FLUTICASONE PROPIONATE, SALMETEROL XINAFOATE (ADVAIR) [Concomitant]
  7. ATROPINE SULFATE, DIPHENOXYLATE HYDROCHLORIDE (LOMOTIL) [Concomitant]
  8. EZETIMIBE (ZETIA   /USA/) [Concomitant]
  9. PIOGLITAZONE HCL [Concomitant]
  10. AMARYL [Concomitant]
  11. HYDROCHLOROTHIAZIDE [Concomitant]
  12. LASIX [Concomitant]
  13. EFFEXOR [Concomitant]
  14. COREG [Concomitant]
  15. ELAVIL [Concomitant]
  16. REGULAR INSULIN [Concomitant]

REACTIONS (1)
  - HYPOGLYCAEMIC COMA [None]
